FAERS Safety Report 9274713 (Version 1)
Quarter: 2013Q2

REPORT INFORMATION
  Report Type: Spontaneous
  Country: US (occurrence: US)
  Receive Date: 20130507
  Receipt Date: 20130507
  Transmission Date: 20140414
  Serious: Yes (Other)
  Sender: FDA-Public Use
  Company Number: US-BAYER-2013-052874

PATIENT
  Age: 28 Year
  Sex: Female

DRUGS (2)
  1. MIRENA [Suspect]
     Dosage: 20 MCG/24HR, CONT
     Route: 015
     Dates: start: 200707, end: 201207
  2. MIRENA [Suspect]
     Dosage: 20 MCG/24HR, CONT
     Route: 015
     Dates: start: 2012

REACTIONS (12)
  - Ovarian cystectomy [None]
  - Smear cervix abnormal [None]
  - Cervix carcinoma [None]
  - Amenorrhoea [None]
  - Abdominal pain lower [None]
  - Genital haemorrhage [None]
  - Nausea [None]
  - Vomiting [None]
  - Asthenia [None]
  - Dizziness [None]
  - Off label use [None]
  - Cervical dysplasia [None]
